FAERS Safety Report 6087368-8 (Version None)
Quarter: 2009Q1

REPORT INFORMATION
  Report Type: 
  Country: None (occurrence: None)
  Receive Date: 20090223
  Receipt Date: 20090217
  Transmission Date: 20090719
  Serious: Yes (Other)
  Sender: FDA-Public Use
  Company Number: B0559818A

PATIENT
  Age: 12 Year
  Sex: Male

DRUGS (2)
  1. RELENZA [Suspect]
     Indication: INFLUENZA
     Dosage: 10MG TWICE PER DAY
     Route: 055
     Dates: start: 20090131, end: 20090201
  2. CHINESE MEDICINE [Concomitant]
     Route: 048
     Dates: start: 20090131, end: 20090202

REACTIONS (7)
  - DEPERSONALISATION [None]
  - HALLUCINATION, AUDITORY [None]
  - HYPERVENTILATION [None]
  - HYPOAESTHESIA [None]
  - ILLUSION [None]
  - NIGHTMARE [None]
  - SLEEP DISORDER [None]
